FAERS Safety Report 10191415 (Version 2)
Quarter: 2014Q2

REPORT INFORMATION
  Report Type: Spontaneous
  Country: US (occurrence: US)
  Receive Date: 20140523
  Receipt Date: 20140627
  Transmission Date: 20141212
  Serious: No
  Sender: FDA-Public Use
  Company Number: US-PFIZER INC-2014137229

PATIENT
  Age: 55 Year
  Sex: Female

DRUGS (1)
  1. XALKORI [Suspect]
     Indication: LUNG NEOPLASM MALIGNANT
     Dosage: 250 MG, 2X/DAY
     Route: 048
     Dates: start: 201402

REACTIONS (2)
  - Nausea [Unknown]
  - Reflux gastritis [Unknown]
